FAERS Safety Report 12447348 (Version 1)
Quarter: 2016Q2

REPORT INFORMATION
  Report Type: Spontaneous
  Country: GB (occurrence: GB)
  Receive Date: 20160608
  Receipt Date: 20160608
  Transmission Date: 20160815
  Serious: Yes (Death, Other)
  Sender: FDA-Public Use
  Company Number: GB-GLAXOSMITHKLINE-GB2016080642

PATIENT
  Age: 16 Year
  Sex: Female
  Weight: 20 kg

DRUGS (8)
  1. DICLOFENAC [Suspect]
     Active Substance: DICLOFENAC
     Indication: PAIN
     Dosage: 50 MG, QD, 25MG IN THE MORNING 12.5MG MIDDAY, 12.5MG NOCTE
     Route: 054
     Dates: start: 20150202, end: 20160211
  2. MOVICOL [Concomitant]
     Active Substance: POLYETHYLENE GLYCOL 3350\POTASSIUM CHLORIDE\SODIUM BICARBONATE\SODIUM CHLORIDE
     Dosage: UNK
  3. DICLOFENAC [Suspect]
     Active Substance: DICLOFENAC
     Dosage: 25 MG, BID
     Route: 054
     Dates: start: 20150203, end: 20160311
  4. HYOSCINE [Concomitant]
     Active Substance: SCOPOLAMINE
     Dosage: UNK
  5. PARACETAMOL [Concomitant]
     Active Substance: ACETAMINOPHEN
     Dosage: UNK
  6. VALPROATE SODIUM. [Concomitant]
     Active Substance: VALPROATE SODIUM
     Dosage: UNK
  7. BUCCOLAM [Concomitant]
     Active Substance: MIDAZOLAM HYDROCHLORIDE
     Dosage: UNK
  8. BACLOFEN. [Concomitant]
     Active Substance: BACLOFEN
     Dosage: UNK

REACTIONS (3)
  - Gastric ulcer perforation [Fatal]
  - Peritonitis [Fatal]
  - Abdominal pain [Fatal]

NARRATIVE: CASE EVENT DATE: 20160310
